FAERS Safety Report 9640023 (Version 1)
Quarter: 2013Q4

REPORT INFORMATION
  Report Type: Spontaneous
  Country: US (occurrence: None)
  Receive Date: 20131022
  Receipt Date: 20131022
  Transmission Date: 20140711
  Serious: Yes (Other)
  Sender: FDA-Public Use
  Company Number: None

PATIENT
  Sex: 0

DRUGS (2)
  1. LEVETIRACETAM [Suspect]
     Dates: start: 20131021, end: 20131021
  2. LEVOFLOXACIN [Suspect]
     Dates: start: 20131021, end: 20131021

REACTIONS (2)
  - Circumstance or information capable of leading to medication error [None]
  - Intercepted drug dispensing error [None]
